FAERS Safety Report 25317872 (Version 1)
Quarter: 2025Q2

REPORT INFORMATION
  Report Type: Other
  Country: IR (occurrence: IR)
  Receive Date: 20250515
  Receipt Date: 20250515
  Transmission Date: 20250716
  Serious: Yes (Hospitalization, Other)
  Sender: ANI
  Company Number: IR-ANIPHARMA-022728

PATIENT
  Age: 32 Year
  Sex: Female

DRUGS (3)
  1. POTASSIUM [Suspect]
     Active Substance: POTASSIUM
     Indication: Ectopic pregnancy termination
     Route: 019
  2. MISOPROSTOL [Suspect]
     Active Substance: MISOPROSTOL
     Indication: Evacuation of retained products of conception
  3. METHOTREXATE [Concomitant]
     Active Substance: METHOTREXATE
     Indication: Ectopic pregnancy termination
     Route: 019

REACTIONS (3)
  - Abortion [Unknown]
  - Drug ineffective [Unknown]
  - Exposure during pregnancy [Unknown]
